FAERS Safety Report 7486683-0 (Version None)
Quarter: 2011Q2

REPORT INFORMATION
  Report Type: 
  Country: None (occurrence: None)
  Receive Date: 20110517
  Receipt Date: 20100824
  Transmission Date: 20111010
  Serious: No
  Sender: FDA-Public Use
  Company Number: US-NOVEN-ALL1-2010-04485

PATIENT
  Sex: Female
  Weight: 62.585 kg

DRUGS (6)
  1. ZOLOFT [Concomitant]
     Dosage: 100 MG, 1X/DAY:QD
     Route: 048
  2. VITAMINS NOS [Concomitant]
     Dosage: UNK, 1X/DAY:QD
     Route: 048
  3. DAYTRANA [Suspect]
     Dosage: 10 MG, 1X/DAY:QD
     Route: 062
     Dates: start: 20100822
  4. BIEST HORMONE COMPOUND [Concomitant]
     Dosage: UNK, 1X/DAY:QD
     Route: 062
     Dates: start: 20091101
  5. AMBIEN [Concomitant]
     Dosage: 10-12.5 MG, AS REQ'D AT NIGHT
     Route: 048
     Dates: start: 20100101
  6. CRESTOR [Concomitant]
     Dosage: 10 MG, 1X/DAY:QD
     Route: 048

REACTIONS (4)
  - HEADACHE [None]
  - MANIA [None]
  - PRODUCT QUALITY ISSUE [None]
  - OFF LABEL USE [None]
